FAERS Safety Report 25171714 (Version 1)
Quarter: 2025Q2

REPORT INFORMATION
  Report Type: Spontaneous
  Country: US (occurrence: US)
  Receive Date: 20250408
  Receipt Date: 20250408
  Transmission Date: 20250717
  Serious: Yes (Other)
  Sender: DR REDDYS
  Company Number: US-DRL-USA-USA/2025/03/004811

PATIENT
  Age: 69 Year
  Sex: Male

DRUGS (1)
  1. COLCHICINE [Suspect]
     Active Substance: COLCHICINE
     Indication: Metastases to heart

REACTIONS (1)
  - Drug ineffective for unapproved indication [Unknown]
